FAERS Safety Report 10369410 (Version 1)
Quarter: 2014Q1

REPORT INFORMATION
  Report Type: Spontaneous
  Country: US (occurrence: None)
  Receive Date: 20140306
  Receipt Date: 20140306
  Transmission Date: 20141002
  Serious: Yes (Disabling, Other)
  Sender: FDA-Public Use
  Company Number: 163-21880-13074902

PATIENT
  Age: 81 Year
  Sex: Male

DRUGS (3)
  1. REVLIMID [Suspect]
     Indication: MYELODYSPLASTIC SYNDROME
     Route: 048
     Dates: start: 201111, end: 2012
  2. COUMADIN (WARFARIN SODIUM) (UNKNOWN) [Concomitant]
  3. VIDAZA (AZACITIDINE) (UNKNOWN) [Concomitant]

REACTIONS (3)
  - Myelodysplastic syndrome [None]
  - Disease progression [None]
  - Platelet count decreased [None]
